FAERS Safety Report 4750676-4 (Version None)
Quarter: 2005Q3

REPORT INFORMATION
  Report Type: 
  Country: None (occurrence: None)
  Receive Date: 20050823
  Receipt Date: 20050802
  Transmission Date: 20060218
  Serious: Yes (Hospitalization)
  Sender: FDA-Public Use
  Company Number: JP-BRISTOL-MYERS SQUIBB COMPANY-13064316

PATIENT
  Age: 69 Year
  Sex: Female

DRUGS (5)
  1. MEVALOTIN TABS [Suspect]
     Indication: HYPERLIPIDAEMIA
     Route: 048
     Dates: start: 20050111, end: 20050705
  2. TOPHARMIN [Concomitant]
     Indication: APATHY
     Dates: start: 20030723, end: 20050705
  3. RHYTHMY [Concomitant]
     Indication: INSOMNIA
     Dates: start: 20040922, end: 20050705
  4. THYRADIN S [Concomitant]
     Indication: HYPOTHYROIDISM
     Dates: start: 20040603
  5. URSODIOL [Concomitant]
     Indication: HEPATIC FUNCTION ABNORMAL
     Dates: start: 20050214, end: 20050705

REACTIONS (6)
  - ALANINE AMINOTRANSFERASE INCREASED [None]
  - ASPARTATE AMINOTRANSFERASE INCREASED [None]
  - BLOOD AMYLASE INCREASED [None]
  - BLOOD GLUCOSE INCREASED [None]
  - PANCREATIC DISORDER [None]
  - RHABDOMYOLYSIS [None]
